FAERS Safety Report 23679860 (Version 1)
Quarter: 2024Q1

REPORT INFORMATION
  Report Type: Spontaneous
  Country: US (occurrence: US)
  Receive Date: 20240327
  Receipt Date: 20240327
  Transmission Date: 20240410
  Serious: No
  Sender: FDA-Public Use
  Company Number: US-009507513-2403USA002569

PATIENT
  Age: 37 Year
  Sex: Male

DRUGS (3)
  1. TRUSOPT [Suspect]
     Active Substance: DORZOLAMIDE HYDROCHLORIDE
     Indication: Angle closure glaucoma
     Dosage: UNK
  2. BRIMONIDINE TARTRATE [Suspect]
     Active Substance: BRIMONIDINE TARTRATE
     Indication: Angle closure glaucoma
     Dosage: UNK
  3. TIMOLOL [Concomitant]
     Active Substance: TIMOLOL
     Dosage: UNK

REACTIONS (1)
  - Product use issue [Unknown]
